FAERS Safety Report 22042320 (Version 1)
Quarter: 2023Q1

REPORT INFORMATION
  Report Type: Spontaneous
  Country: CN (occurrence: CN)
  Receive Date: 20230227
  Receipt Date: 20230227
  Transmission Date: 20230418
  Serious: Yes (Other)
  Sender: FDA-Public Use
  Company Number: None

PATIENT
  Age: 41 Year
  Sex: Female
  Weight: 70 kg

DRUGS (4)
  1. MANNITOL [Suspect]
     Active Substance: MANNITOL
     Indication: Diuretic therapy
     Dosage: 250 MILLILITERS, ONCE DAILY (DOSAGE FORM - INJECTION)
     Route: 041
     Dates: start: 20230204, end: 20230206
  2. MANNITOL [Suspect]
     Active Substance: MANNITOL
     Indication: Spinal decompression
  3. MANNITOL [Suspect]
     Active Substance: MANNITOL
     Indication: Intervertebral disc protrusion
  4. MANNITOL [Suspect]
     Active Substance: MANNITOL
     Indication: Sciatica

REACTIONS (2)
  - Chest discomfort [Recovering/Resolving]
  - Discomfort [Recovering/Resolving]

NARRATIVE: CASE EVENT DATE: 20230206
